FAERS Safety Report 6354766-4 (Version None)
Quarter: 2009Q3

REPORT INFORMATION
  Report Type: 
  Country: None (occurrence: None)
  Receive Date: 20090909
  Receipt Date: 20090825
  Transmission Date: 20100115
  Serious: Yes (Other)
  Sender: FDA-Public Use
  Company Number: 001604

PATIENT
  Sex: Male

DRUGS (2)
  1. LACOSAMIDE [Suspect]
     Indication: CONVULSION
     Dosage: (100 MG QD ORAL)
     Route: 048
  2. ANTIEPILEPTICS [Concomitant]

REACTIONS (1)
  - CONVULSION [None]
